FAERS Safety Report 16143733 (Version 2)
Quarter: 2019Q2

REPORT INFORMATION
  Report Type: Spontaneous
  Country: CA (occurrence: CA)
  Receive Date: 20190401
  Receipt Date: 20190424
  Transmission Date: 20190711
  Serious: Yes (Other)
  Sender: FDA-Public Use
  Company Number: CA-PFIZER INC-2019130816

PATIENT
  Age: 30 Year
  Sex: Female

DRUGS (1)
  1. DEPO-PROVERA [Suspect]
     Active Substance: MEDROXYPROGESTERONE ACETATE
     Indication: CONTRACEPTION
     Dosage: UNK
     Dates: start: 1999, end: 200606

REACTIONS (4)
  - Osteoporosis [Unknown]
  - Spinal fracture [Unknown]
  - Intervertebral disc compression [Unknown]
  - Osteopenia [Unknown]

NARRATIVE: CASE EVENT DATE: 20060810
